FAERS Safety Report 5693154-0 (Version None)
Quarter: 2008Q2

REPORT INFORMATION
  Report Type: 
  Country: None (occurrence: None)
  Receive Date: 20080402
  Receipt Date: 20080402
  Transmission Date: 20081010
  Serious: Yes (Other)
  Sender: FDA-Public Use
  Company Number: None

PATIENT
  Age: 43 Year
  Sex: Male
  Weight: 100.2449 kg

DRUGS (5)
  1. OXALIPLATIN [Suspect]
     Indication: NEOPLASM MALIGNANT
     Dosage: 200MG IV DRIP
     Route: 041
     Dates: start: 20080331, end: 20080331
  2. AVASTIN [Concomitant]
  3. ALOXI [Concomitant]
  4. DECADRON [Concomitant]
  5. ATIVAN [Concomitant]

REACTIONS (4)
  - FEELING HOT [None]
  - FLUSHING [None]
  - HYPOTENSION [None]
  - INFUSION RELATED REACTION [None]
